FAERS Safety Report 5654107-1 (Version None)
Quarter: 2008Q1

REPORT INFORMATION
  Report Type: 
  Country: None (occurrence: None)
  Receive Date: 20080306
  Receipt Date: 20080225
  Transmission Date: 20080703
  Serious: Yes (Other)
  Sender: FDA-Public Use
  Company Number: DE-PFIZER INC-2008018854

PATIENT
  Sex: Female

DRUGS (1)
  1. LYRICA [Suspect]
     Indication: TRIGEMINAL NEURALGIA
     Dosage: DAILY DOSE:450MG
     Route: 048

REACTIONS (5)
  - ABDOMINAL DISTENSION [None]
  - BREAST ENLARGEMENT [None]
  - ERYTHEMA [None]
  - EYELID OEDEMA [None]
  - FLUID RETENTION [None]
